FAERS Safety Report 20131428 (Version 1)
Quarter: 2021Q4

REPORT INFORMATION
  Report Type: Spontaneous
  Country: US (occurrence: US)
  Receive Date: 20211130
  Receipt Date: 20211130
  Transmission Date: 20220303
  Serious: No
  Sender: FDA-Public Use
  Company Number: US-TEVA-2021-US-1978800

PATIENT
  Sex: Female

DRUGS (19)
  1. COPAXONE [Suspect]
     Active Substance: GLATIRAMER ACETATE
     Indication: Multiple sclerosis
     Dosage: FORM STRENGTH AND DOSE: UNKNOWN
     Route: 065
  2. HYDROXYZINE [Concomitant]
     Active Substance: HYDROXYZINE HYDROCHLORIDE
  3. COVID-19 VACCINE NOS [Concomitant]
     Active Substance: COVID-19 VACCINE NOS
  4. MEDROL [Concomitant]
     Active Substance: METHYLPREDNISOLONE
  5. AMLODIPINE [Concomitant]
     Active Substance: AMLODIPINE BESYLATE
  6. LOSARTAN [Concomitant]
     Active Substance: LOSARTAN
  7. LEVOTHYROXINE [Concomitant]
     Active Substance: LEVOTHYROXINE
  8. TRAMADOL [Concomitant]
     Active Substance: TRAMADOL
  9. ATOMOXETINE [Concomitant]
     Active Substance: ATOMOXETINE
  10. OMEPRAZOLE [Concomitant]
     Active Substance: OMEPRAZOLE
  11. ESCITALOPRAM [Concomitant]
     Active Substance: ESCITALOPRAM OXALATE
  12. SIMVASTATIN [Concomitant]
     Active Substance: SIMVASTATIN
  13. GABAPENTIN [Concomitant]
     Active Substance: GABAPENTIN
  14. BREO ELLIPTA [Concomitant]
     Active Substance: FLUTICASONE FUROATE\VILANTEROL TRIFENATATE
  15. VIVELLE-DOT [Concomitant]
     Active Substance: ESTRADIOL
  16. FISH OIL [Concomitant]
     Active Substance: FISH OIL
  17. ALBUTEROL [Concomitant]
     Active Substance: ALBUTEROL
  18. VITAMINS [Concomitant]
     Active Substance: VITAMINS
  19. BENADRYL [Concomitant]
     Active Substance: DIPHENHYDRAMINE HYDROCHLORIDE

REACTIONS (1)
  - Fatigue [Unknown]
